FAERS Safety Report 6359858-1 (Version None)
Quarter: 2009Q3

REPORT INFORMATION
  Report Type: 
  Country: None (occurrence: None)
  Receive Date: 20090917
  Receipt Date: 20090908
  Transmission Date: 20100115
  Serious: Yes (Hospitalization)
  Sender: FDA-Public Use
  Company Number: B0592162A

PATIENT
  Sex: Female

DRUGS (8)
  1. HYCAMTIN [Suspect]
     Route: 042
     Dates: start: 20090518, end: 20090521
  2. SEROPLEX [Concomitant]
     Route: 048
  3. INEXIUM [Concomitant]
     Dosage: 20MG PER DAY
     Route: 048
  4. LASIX [Concomitant]
     Dosage: 40MG PER DAY
     Route: 048
  5. FEMARA [Concomitant]
     Route: 048
     Dates: start: 20090520
  6. PREVISCAN [Concomitant]
     Indication: THROMBOSIS PROPHYLAXIS
     Dosage: 10MG PER DAY
     Route: 048
     Dates: start: 20070901, end: 20090527
  7. PLITICAN [Concomitant]
     Indication: DRUG USE FOR UNKNOWN INDICATION
     Route: 042
     Dates: start: 20070518, end: 20090522
  8. PRIMPERAN [Concomitant]
     Indication: NAUSEA
     Route: 048
     Dates: start: 20090519

REACTIONS (2)
  - AGRANULOCYTOSIS [None]
  - THROMBOCYTOPENIA [None]
